FAERS Safety Report 8435393-1 (Version None)
Quarter: 2012Q2

REPORT INFORMATION
  Report Type: 
  Country: None (occurrence: None)
  Receive Date: 20120614
  Receipt Date: 20120612
  Transmission Date: 20120825
  Serious: Yes (Other)
  Sender: FDA-Public Use
  Company Number: PHEH2012US011797

PATIENT
  Sex: Female

DRUGS (1)
  1. VALTURNA [Suspect]
     Dosage: UNK UKN, UNK

REACTIONS (1)
  - DIABETES MELLITUS [None]
